FAERS Safety Report 16190886 (Version 1)
Quarter: 2019Q2

REPORT INFORMATION
  Report Type: Other
  Country: GB (occurrence: GB)
  Receive Date: 20190412
  Receipt Date: 20190412
  Transmission Date: 20190711
  Serious: Yes (Other)
  Sender: FDA-Public Use
  Company Number: GB-HERITAGE PHARMACEUTICALS-2019HTG00144

PATIENT
  Age: 18 Year
  Sex: Male

DRUGS (2)
  1. FLUOXETINE [Suspect]
     Active Substance: FLUOXETINE HYDROCHLORIDE
     Dosage: 20 MG
  2. FLUOXETINE [Suspect]
     Active Substance: FLUOXETINE HYDROCHLORIDE
     Indication: DEPRESSION
     Dosage: 10 MG, 1X/DAY

REACTIONS (1)
  - Spontaneous ejaculation [Not Recovered/Not Resolved]

NARRATIVE: CASE EVENT DATE: 201811
